FAERS Safety Report 4577687-6 (Version None)
Quarter: 2005Q1

REPORT INFORMATION
  Report Type: 
  Country: None (occurrence: None)
  Receive Date: 20050210
  Receipt Date: 20050105
  Transmission Date: 20050727
  Serious: Yes (Hospitalization)
  Sender: FDA-Public Use
  Company Number: JP-MERCK-0501USA00454

PATIENT
  Age: 68 Year
  Sex: Female

DRUGS (13)
  1. PRIMAXIN [Suspect]
     Route: 030
     Dates: start: 20041229, end: 20041231
  2. PHENYTOIN SODIUM CAP [Suspect]
     Indication: CONVULSION
     Route: 042
     Dates: start: 20050101
  3. PHENYTOIN SODIUM CAP [Suspect]
     Route: 042
     Dates: start: 20050101
  4. PHENYTOIN SODIUM CAP [Suspect]
     Route: 042
     Dates: start: 20050101
  5. SYMMETREL [Concomitant]
     Indication: PARKINSON'S DISEASE
     Route: 048
     Dates: start: 20030218
  6. URSODIOL [Concomitant]
     Indication: NEOPLASM MALIGNANT
     Route: 048
     Dates: start: 20041224
  7. GASMOTIN [Concomitant]
     Indication: PROPHYLAXIS OF NAUSEA AND VOMITING
     Route: 048
     Dates: start: 20041228
  8. SELBEX [Concomitant]
     Indication: GASTROINTESTINAL DISORDER
     Route: 048
     Dates: start: 20041228
  9. CERCINE [Concomitant]
     Indication: CONVULSION
     Route: 048
     Dates: start: 20050101
  10. PHENOBAL [Concomitant]
     Indication: CONVULSION
     Route: 030
     Dates: start: 20050101
  11. DIAZEPAM [Concomitant]
     Indication: CONVULSION
     Route: 054
     Dates: start: 20050101
  12. ROCEPHIN [Concomitant]
     Indication: PYREXIA
     Route: 042
     Dates: start: 20041201, end: 20041227
  13. MEROPENEM [Concomitant]
     Indication: PYREXIA
     Route: 042
     Dates: start: 20041227, end: 20041229

REACTIONS (4)
  - CONVULSION [None]
  - MEDICATION ERROR [None]
  - OVERDOSE [None]
  - RESPIRATORY DEPRESSION [None]
